FAERS Safety Report 5352051-0 (Version None)
Quarter: 2007Q2

REPORT INFORMATION
  Report Type: 
  Country: None (occurrence: None)
  Receive Date: 20070611
  Receipt Date: 20070530
  Transmission Date: 20071010
  Serious: Yes (Other)
  Sender: FDA-Public Use
  Company Number: PHHO2007IT07077

PATIENT
  Age: 61 Year
  Sex: Female
  Weight: 84 kg

DRUGS (3)
  1. GLEEVEC [Suspect]
     Indication: ACUTE LYMPHOCYTIC LEUKAEMIA
     Dosage: 800 MG, QD
     Route: 048
     Dates: start: 20070330, end: 20070419
  2. GLEEVEC [Suspect]
     Dosage: 400MG QD
     Route: 048
     Dates: start: 20070502
  3. DELTACORTENE [Concomitant]
     Dosage: 87 MG, QD
     Route: 048
     Dates: start: 20070323

REACTIONS (3)
  - DISSEMINATED INTRAVASCULAR COAGULATION [None]
  - GASTROINTESTINAL HAEMORRHAGE [None]
  - THROMBOCYTOPENIA [None]
